FAERS Safety Report 13940171 (Version 1)
Quarter: 2017Q3

REPORT INFORMATION
  Report Type: Spontaneous
  Country: US (occurrence: None)
  Receive Date: 20170906
  Receipt Date: 20170906
  Transmission Date: 20171127
  Serious: Yes (Disabling)
  Sender: FDA-Public Use
  Company Number: None

PATIENT
  Age: 88 Year
  Sex: Male
  Weight: 82.55 kg

DRUGS (2)
  1. TERAZOSIN [Concomitant]
     Active Substance: TERAZOSIN\TERAZOSIN HYDROCHLORIDE
  2. AMOXICILLIN 500MG [Suspect]
     Active Substance: AMOXICILLIN
     Indication: INFECTION PROPHYLAXIS
     Dosage: ONE CAPSULE EVERY 8 HRS BY MOUTH
     Route: 048
     Dates: start: 20170718, end: 20170727

REACTIONS (3)
  - Vision blurred [None]
  - Drug interaction [None]
  - Diplopia [None]

NARRATIVE: CASE EVENT DATE: 20170727
